FAERS Safety Report 21068305 (Version 1)
Quarter: 2022Q3

REPORT INFORMATION
  Report Type: Spontaneous
  Country: US (occurrence: US)
  Receive Date: 20220712
  Receipt Date: 20220712
  Transmission Date: 20221027
  Serious: Yes (Other)
  Sender: FDA-Public Use
  Company Number: US-GLENMARK PHARMACEUTICALS-2022GMK071563

PATIENT

DRUGS (2)
  1. ESTRADIOL [Suspect]
     Active Substance: ESTRADIOL
     Indication: Vulvovaginal dryness
     Dosage: UNK, TWICE A WEEK
     Route: 067
     Dates: start: 20220301
  2. ESTRADIOL [Suspect]
     Active Substance: ESTRADIOL
     Dosage: UNK, TWICE A WEEK
     Route: 067
     Dates: start: 202203

REACTIONS (5)
  - Vulvovaginal injury [Recovering/Resolving]
  - Wrong technique in product usage process [Unknown]
  - Vulvovaginal dryness [Recovering/Resolving]
  - Condition aggravated [Recovering/Resolving]
  - Device delivery system issue [Unknown]

NARRATIVE: CASE EVENT DATE: 20220301
